FAERS Safety Report 7127360-5 (Version None)
Quarter: 2010Q4

REPORT INFORMATION
  Report Type: 
  Country: None (occurrence: None)
  Receive Date: 20101129
  Receipt Date: 20091014
  Transmission Date: 20110411
  Serious: No
  Sender: FDA-Public Use
  Company Number: US-PFIZER INC-2009232954

PATIENT
  Sex: Female
  Weight: 64 kg

DRUGS (4)
  1. SILDENAFIL CITRATE [Suspect]
     Indication: PULMONARY HYPERTENSION
     Dosage: UNK
     Dates: start: 20090420
  2. ACTOS [Concomitant]
     Dosage: 15 MG, UNK
     Dates: start: 20090709
  3. METFORMIN [Concomitant]
     Dosage: 500 MG, UNK
     Dates: start: 20090709
  4. GLYBURIDE [Concomitant]
     Dosage: 1.25 MG, UNK
     Dates: start: 20090610

REACTIONS (3)
  - CHEST DISCOMFORT [None]
  - DYSPNOEA [None]
  - TREATMENT NONCOMPLIANCE [None]
